FAERS Safety Report 7109684-0 (Version None)
Quarter: 2010Q4

REPORT INFORMATION
  Report Type: 
  Country: None (occurrence: None)
  Receive Date: 20101115
  Receipt Date: 20101115
  Transmission Date: 20110411
  Serious: Yes (Hospitalization)
  Sender: FDA-Public Use
  Company Number: None

PATIENT
  Age: 46 Year
  Sex: Female
  Weight: 61.4 kg

DRUGS (4)
  1. DECITABINE 0.2MG/KG [Suspect]
     Indication: MYELODYSPLASTIC SYNDROME
     Dosage: DECITABINE 0.2MG/KG
     Dates: start: 20101006, end: 20101028
  2. CIPRO [Concomitant]
  3. ACYCLOVIR SODIUM [Concomitant]
  4. VICODIN [Concomitant]

REACTIONS (5)
  - FEBRILE NEUTROPENIA [None]
  - HAEMOGLOBIN DECREASED [None]
  - HYPOTENSION [None]
  - PLATELET COUNT DECREASED [None]
  - PRURITUS [None]
